FAERS Safety Report 11176048 (Version 1)
Quarter: 2015Q2

REPORT INFORMATION
  Report Type: Spontaneous
  Country: GB (occurrence: GB)
  Receive Date: 20150609
  Receipt Date: 20150609
  Transmission Date: 20150821
  Serious: Yes (Other)
  Sender: FDA-Public Use
  Company Number: GB-BAXTER-2015BAX030117

PATIENT
  Age: 4 Year
  Sex: Female
  Weight: 12 kg

DRUGS (7)
  1. OXYGEN. [Suspect]
     Active Substance: OXYGEN
     Indication: INDUCTION OF ANAESTHESIA
     Route: 055
  2. ATRACURIUM [Suspect]
     Active Substance: ATRACURIUM
     Indication: ENDOTRACHEAL INTUBATION
     Route: 065
  3. SEVOFLURANE BAXTER, 100% INHALATION VAPOUR, LIQUID [Suspect]
     Active Substance: SEVOFLURANE
     Indication: INDUCTION OF ANAESTHESIA
     Route: 055
  4. AERRANE (ISOFLURANE) [Suspect]
     Active Substance: ISOFLURANE
     Indication: MAINTENANCE OF ANAESTHESIA
     Route: 055
  5. OXYGEN. [Suspect]
     Active Substance: OXYGEN
     Indication: MAINTENANCE OF ANAESTHESIA
     Dosage: 3.5 LITRE PER MINUTE
     Route: 065
  6. OXYGEN. [Suspect]
     Active Substance: OXYGEN
     Dosage: 1.5 LITRE PER MINUTE
     Route: 065
  7. DEXAMETHASONE. [Suspect]
     Active Substance: DEXAMETHASONE
     Indication: PRODUCT USED FOR UNKNOWN INDICATION
     Route: 065

REACTIONS (1)
  - Hypoxia [Recovered/Resolved]
